FAERS Safety Report 7590414-3 (Version None)
Quarter: 2011Q2

REPORT INFORMATION
  Report Type: 
  Country: None (occurrence: None)
  Receive Date: 20110627
  Receipt Date: 20110615
  Transmission Date: 20111010
  Serious: Yes (Other)
  Sender: FDA-Public Use
  Company Number: 1000021699

PATIENT
  Age: 75 Year
  Sex: Female

DRUGS (12)
  1. LEVOTHYROXINE SODIUM (LEVOTHYROXINE SODIUM) (LEVOTHYROXINE SODIUM) [Concomitant]
  2. NICORANDIL (NICORANDIL) (NICORANDIL) [Concomitant]
  3. PROCHLORPERAZINE (PROCHLORPERAZINE) (PROCHLORPERAZINE) [Concomitant]
  4. RISEDRONATE (RISEDRONIC ACID) (RISEDRONIC ACID) [Concomitant]
  5. TILDIEM (DILTIAZEM HYDROCHLORIDE) (DILTIAZEM HYDROCHLORIDE) [Concomitant]
  6. ASPIRIN [Concomitant]
  7. PENTASA (MESALAZINE) (MESALAZINE) [Concomitant]
  8. CEFRADINE (CEFRADINE) (CEFRADINE) [Concomitant]
  9. ROSUVASTATIN (ROSUVATATIN) (ROSUVASTATIN) [Concomitant]
  10. MEMANTINE [Suspect]
  11. OMEPRAZOLE [Concomitant]
  12. TRAMADOL HCL [Concomitant]

REACTIONS (4)
  - AGITATION [None]
  - JAUNDICE [None]
  - VOMITING [None]
  - CHEST PAIN [None]
